FAERS Safety Report 17726717 (Version 6)
Quarter: 2020Q2

REPORT INFORMATION
  Report Type: Spontaneous
  Country: RO (occurrence: RO)
  Receive Date: 20200430
  Receipt Date: 20200615
  Transmission Date: 20200714
  Serious: Yes (Death, Hospitalization, Other)
  Sender: FDA-Public Use
  Company Number: RO-AMGEN-ROUSP2020070400

PATIENT
  Age: 63 Year
  Sex: Male

DRUGS (10)
  1. SIOFOR [Concomitant]
     Active Substance: METFORMIN HYDROCHLORIDE
     Dosage: 1 G, 1X/DAY
  2. DIUREX [FUROSEMIDE;SPIRONOLACTONE] [Concomitant]
     Active Substance: FUROSEMIDE\SPIRONOLACTONE
     Dosage: UNK UNK, 1X/DAY
  3. LIPANTHYL [Concomitant]
     Active Substance: FENOFIBRATE
     Dosage: UNK UNK, 1X/DAY
  4. REVADA [Concomitant]
     Dosage: UNK UNK, 1X/DAY
  5. VESSEL DUE F [Concomitant]
     Active Substance: SULODEXIDE
     Dosage: UNK UNK, 2X/DAY
  6. ENBREL [Suspect]
     Active Substance: ETANERCEPT
     Indication: PSORIASIS
     Dosage: 50 MG, WEEKLY
     Route: 058
     Dates: start: 20151001
  7. ASPIRIN [ACETYLSALICYLIC ACID] [Concomitant]
     Active Substance: ASPIRIN
     Dosage: 100 1 / DAY
  8. CARVEDILOL. [Concomitant]
     Active Substance: CARVEDILOL
     Dosage: 12.5 2X1 / DAY
  9. PENTOXI [Concomitant]
     Dosage: RET400 2X1 / DAY
  10. SEVIKAR [Concomitant]
     Active Substance: AMLODIPINE BESYLATE\OLMESARTAN MEDOXOMIL

REACTIONS (8)
  - COVID-19 [Fatal]
  - Vomiting [Not Recovered/Not Resolved]
  - Chronic obstructive pulmonary disease [Not Recovered/Not Resolved]
  - Chest pain [Not Recovered/Not Resolved]
  - Dyspnoea [Not Recovered/Not Resolved]
  - Pneumonia [Not Recovered/Not Resolved]
  - Cardio-respiratory arrest [Fatal]
  - Acute respiratory failure [Not Recovered/Not Resolved]

NARRATIVE: CASE EVENT DATE: 20200424
